APPROVED DRUG PRODUCT: LORATADINE
Active Ingredient: LORATADINE
Strength: 5MG
Dosage Form/Route: TABLET, CHEWABLE;ORAL
Application: A210033 | Product #001
Applicant: PERRIGO PHARMA INTERNATIONAL DESIGNATED ACTIVITY CO
Approved: Jun 12, 2019 | RLD: No | RS: No | Type: OTC